FAERS Safety Report 16930393 (Version 1)
Quarter: 2019Q4

REPORT INFORMATION
  Report Type: Spontaneous
  Country: GB (occurrence: GB)
  Receive Date: 20191017
  Receipt Date: 20191017
  Transmission Date: 20200122
  Serious: Yes (Other)
  Sender: FDA-Public Use
  Company Number: GB-MYLANLABS-2019M1097330

PATIENT
  Age: 53 Year
  Sex: Female
  Weight: 52.16 kg

DRUGS (2)
  1. UTROGESTAN [Concomitant]
     Active Substance: PROGESTERONE
     Dosage: UNK
  2. ZUMENON [Suspect]
     Active Substance: ESTRADIOL
     Indication: HORMONE REPLACEMENT THERAPY
     Dosage: 2 MILLIGRAM
     Route: 048
     Dates: start: 20181211, end: 20190604

REACTIONS (6)
  - Sunburn [Unknown]
  - Pain of skin [Unknown]
  - Photosensitivity reaction [Unknown]
  - Pruritus [Unknown]
  - Paraesthesia [Unknown]
  - Sensitive skin [Unknown]

NARRATIVE: CASE EVENT DATE: 20181211
